FAERS Safety Report 5956823-0 (Version None)
Quarter: 2008Q4

REPORT INFORMATION
  Report Type: 
  Country: None (occurrence: None)
  Receive Date: 20081118
  Receipt Date: 20081112
  Transmission Date: 20090506
  Serious: Yes (Hospitalization)
  Sender: FDA-Public Use
  Company Number: PHHO2008IE03136

PATIENT
  Sex: Female
  Weight: 82 kg

DRUGS (3)
  1. CGS 20267 T30748+TAB [Suspect]
     Indication: BREAST CANCER
     Dosage: 2.5 MG, QD
     Route: 048
     Dates: start: 20080303
  2. TAXOL [Suspect]
     Dosage: UNK
     Dates: start: 20071220, end: 20080206
  3. CALCICHEW D3 [Concomitant]

REACTIONS (11)
  - ADVERSE DRUG REACTION [None]
  - BLISTER [None]
  - BLOOD LACTATE DEHYDROGENASE ABNORMAL [None]
  - CELLULITIS [None]
  - ERYTHEMA [None]
  - PHOTOSENSITIVITY REACTION [None]
  - PRURITUS GENERALISED [None]
  - RASH [None]
  - RASH GENERALISED [None]
  - SKIN DISORDER [None]
  - SYSTEMIC LUPUS ERYTHEMATOSUS RASH [None]
